FAERS Safety Report 9629320 (Version 1)
Quarter: 2013Q4

REPORT INFORMATION
  Report Type: Spontaneous
  Country: US (occurrence: US)
  Receive Date: 20131017
  Receipt Date: 20131017
  Transmission Date: 20140711
  Serious: No
  Sender: FDA-Public Use
  Company Number: US-ASTRAZENECA-2013SE67663

PATIENT
  Age: 75 Year
  Sex: Female
  Weight: 72.6 kg

DRUGS (6)
  1. CRESTOR [Suspect]
     Indication: BLOOD CHOLESTEROL INCREASED
     Dosage: SPLITED THE 10MG CRESTOR TABLET TO TAKE 5MG.
     Route: 048
  2. CRESTOR [Suspect]
     Indication: BLOOD CHOLESTEROL INCREASED
     Route: 048
     Dates: start: 2011, end: 2011
  3. BENICAR [Concomitant]
     Indication: BLOOD PRESSURE ABNORMAL
     Route: 048
  4. HYDROCHLORTHIAZIDE [Concomitant]
     Indication: BLOOD PRESSURE ABNORMAL
     Dosage: 1/4 TAB 25MG PRN
     Route: 048
  5. HYDROCHLORTHIAZIDE [Concomitant]
     Indication: FLUID RETENTION
     Dosage: 1/4 TAB 25MG PRN
     Route: 048
  6. LEBETALOL [Concomitant]
     Indication: BLOOD PRESSURE ABNORMAL
     Route: 048

REACTIONS (7)
  - Bronchitis [Recovered/Resolved]
  - Burning sensation [Unknown]
  - Feeling abnormal [Unknown]
  - Sensory disturbance [Unknown]
  - Malaise [Unknown]
  - Myalgia [Unknown]
  - Off label use [Unknown]
